FAERS Safety Report 5897045-1 (Version None)
Quarter: 2008Q3

REPORT INFORMATION
  Report Type: 
  Country: None (occurrence: None)
  Receive Date: 20080924
  Receipt Date: 20080916
  Transmission Date: 20090109
  Serious: Yes (Other)
  Sender: FDA-Public Use
  Company Number: NL-MERCK-0710NLD00034

PATIENT
  Age: 64 Year
  Sex: Female

DRUGS (5)
  1. VYTORIN [Suspect]
     Indication: HYPERCHOLESTEROLAEMIA
     Route: 048
     Dates: start: 20060601, end: 20070906
  2. ROSIGLITAZONE MALEATE [Suspect]
     Indication: DIABETES MELLITUS
     Route: 048
     Dates: start: 20050521, end: 20070521
  3. LEVOTHYROXINE SODIUM [Concomitant]
     Route: 065
     Dates: start: 19900924
  4. GLICLAZIDE [Concomitant]
     Route: 048
     Dates: start: 19960101
  5. ASPIRIN CALCIUM [Concomitant]
     Route: 065

REACTIONS (3)
  - ARTERIOSCLEROSIS [None]
  - JOINT SWELLING [None]
  - OEDEMA PERIPHERAL [None]
